FAERS Safety Report 8298745-9 (Version None)
Quarter: 2012Q2

REPORT INFORMATION
  Report Type: 
  Country: None (occurrence: None)
  Receive Date: 20120419
  Receipt Date: 20120410
  Transmission Date: 20120825
  Serious: Yes (Other)
  Sender: FDA-Public Use
  Company Number: BR-ASTRAZENECA-2012SE23999

PATIENT
  Age: 52 Year
  Sex: Female
  Weight: 81 kg

DRUGS (7)
  1. FLUOXETINE [Concomitant]
     Route: 048
     Dates: start: 20030101
  2. CLONAZEPAM [Concomitant]
     Route: 048
     Dates: start: 20030101
  3. BUDESONIDE [Suspect]
     Indication: RHINITIS
     Route: 045
     Dates: start: 20080101
  4. BUDESONIDE [Suspect]
     Indication: HYPERSENSITIVITY
     Route: 045
     Dates: start: 20080101
  5. CRESTOR [Suspect]
     Indication: BLOOD TRIGLYCERIDES INCREASED
     Route: 048
     Dates: start: 20070901
  6. SYMBICORT [Suspect]
     Indication: BRONCHITIS
     Dosage: 160/4.5 MCG TWO TIMES A DAY
     Route: 055
     Dates: start: 20080101
  7. SYMBICORT [Suspect]
     Dosage: 160/4.5 MCG ONCE DAILY
     Route: 055

REACTIONS (8)
  - INFLUENZA [None]
  - INTENTIONAL DRUG MISUSE [None]
  - CHEST PAIN [None]
  - DYSPNOEA [None]
  - EAR INFECTION [None]
  - LIP SWELLING [None]
  - BRONCHITIS [None]
  - RHINITIS [None]
